FAERS Safety Report 8437018 (Version 2)
Quarter: 2013Q3

REPORT INFORMATION
  Report Type: Spontaneous
  Country: US (occurrence: US)
  Receive Date: 20120302
  Receipt Date: 20130812
  Transmission Date: 20140515
  Serious: Yes (Hospitalization)
  Sender: FDA-Public Use
  Company Number: US-US-EMD SERONO, INC.-7112982

PATIENT
  Age: 32 Year
  Sex: Female

DRUGS (1)
  1. REBIF [Suspect]
     Indication: MULTIPLE SCLEROSIS
     Route: 058
     Dates: start: 20111220

REACTIONS (4)
  - Cholelithiasis [Recovered/Resolved]
  - Liver function test abnormal [Unknown]
  - Influenza like illness [Unknown]
  - Injection site erythema [Unknown]
